FAERS Safety Report 13117245 (Version 2)
Quarter: 2017Q1

REPORT INFORMATION
  Report Type: Spontaneous
  Country: US (occurrence: US)
  Receive Date: 20170116
  Receipt Date: 20170215
  Transmission Date: 20170428
  Serious: Yes (Hospitalization)
  Sender: FDA-Public Use
  Company Number: US-JNJFOC-20170107791

PATIENT
  Sex: Male
  Weight: 65.77 kg

DRUGS (3)
  1. DURAGESIC [Suspect]
     Active Substance: FENTANYL
     Indication: PAIN
     Route: 062
     Dates: start: 2015
  2. OXYCODONE [Concomitant]
     Active Substance: OXYCODONE
     Indication: BREAKTHROUGH PAIN
     Dosage: ONE AND A HALF TABLETS, EVERY 4 HOURS AS NEEDED
     Route: 048
     Dates: start: 2000
  3. DURAGESIC [Suspect]
     Active Substance: FENTANYL
     Indication: PAIN
     Route: 062
     Dates: start: 2000, end: 2015

REACTIONS (7)
  - Coma [Recovered/Resolved]
  - Gun shot wound [Unknown]
  - Withdrawal syndrome [Recovered/Resolved]
  - Therapeutic response decreased [Unknown]
  - Product quality issue [Unknown]
  - Nerve injury [Not Recovered/Not Resolved]
  - Shoulder arthroplasty [Unknown]

NARRATIVE: CASE EVENT DATE: 2005
